FAERS Safety Report 4890779-7 (Version None)
Quarter: 2006Q1

REPORT INFORMATION
  Report Type: 
  Country: None (occurrence: None)
  Receive Date: 20060123
  Receipt Date: 20060119
  Transmission Date: 20060701
  Serious: Yes (Death)
  Sender: FDA-Public Use
  Company Number: 2006-BP-00631RO

PATIENT
  Age: 62 Year
  Sex: Male

DRUGS (2)
  1. PREDNISONE TAB [Suspect]
     Indication: PROSTATE CANCER
     Dosage: 10MG, DAILY, PO
     Route: 048
     Dates: start: 20050819, end: 20051125
  2. IROFULVEN (IROFULVEN) [Suspect]
     Indication: PROSTATE CANCER
     Dosage: 0.45MG/KG DAY 1, 8 OF 21D CYCLE , IV
     Route: 042
     Dates: start: 20050819, end: 20051125

REACTIONS (1)
  - DISEASE PROGRESSION [None]
